FAERS Safety Report 13529366 (Version 1)
Quarter: 2017Q2

REPORT INFORMATION
  Report Type: Spontaneous
  Country: US (occurrence: US)
  Receive Date: 20170509
  Receipt Date: 20170509
  Transmission Date: 20170830
  Serious: No
  Sender: FDA-Public Use
  Company Number: US-ROCHE-GNE296926

PATIENT
  Age: 42 Year
  Sex: Male
  Weight: 79.18 kg

DRUGS (5)
  1. LISINOPRIL. [Concomitant]
     Active Substance: LISINOPRIL
     Indication: PRODUCT USED FOR UNKNOWN INDICATION
  2. XOLAIR [Suspect]
     Active Substance: OMALIZUMAB
     Indication: NASAL POLYPS
  3. XOLAIR [Suspect]
     Active Substance: OMALIZUMAB
     Indication: RHINITIS ALLERGIC
  4. XOLAIR [Suspect]
     Active Substance: OMALIZUMAB
     Indication: SINUSITIS
  5. XOLAIR [Suspect]
     Active Substance: OMALIZUMAB
     Indication: ASTHMA
     Dosage: 375 MG, Q2W
     Route: 058
     Dates: start: 200710

REACTIONS (2)
  - Drug ineffective [None]
  - Asthma [Unknown]

NARRATIVE: CASE EVENT DATE: 200912
